FAERS Safety Report 11162172 (Version 1)
Quarter: 2015Q2

REPORT INFORMATION
  Report Type: Spontaneous
  Country: US (occurrence: US)
  Receive Date: 20150604
  Receipt Date: 20150604
  Transmission Date: 20150821
  Serious: No
  Sender: FDA-Public Use
  Company Number: US-SA-2014SA127312

PATIENT
  Age: 65 Year
  Sex: Female

DRUGS (3)
  1. LANTUS SOLOSTAR [Suspect]
     Active Substance: INSULIN GLARGINE
     Indication: TYPE 3 DIABETES MELLITUS
     Dosage: DOSE:42 UNIT(S)
     Route: 065
     Dates: start: 201403
  2. CORTICOSTEROID NOS [Concomitant]
     Active Substance: CORTICOSTEROID NOS
     Dosage: STEROIDS THAT WERE GIVEN TO HER FOR HER CHEMO
  3. SOLOSTAR [Suspect]
     Active Substance: DEVICE
     Indication: TYPE 3 DIABETES MELLITUS
     Dates: start: 201403

REACTIONS (3)
  - Feeling abnormal [Unknown]
  - Blood glucose increased [Unknown]
  - Injection site bruising [Unknown]
